FAERS Safety Report 7508848-1 (Version None)
Quarter: 2011Q2

REPORT INFORMATION
  Report Type: 
  Country: None (occurrence: None)
  Receive Date: 20110527
  Receipt Date: 20110513
  Transmission Date: 20111010
  Serious: Yes (Hospitalization, Other)
  Sender: FDA-Public Use
  Company Number: PHHY2011US41396

PATIENT
  Sex: Male

DRUGS (2)
  1. TEKTURNA [Suspect]
     Dosage: 300 MG, QD
  2. MASS STEROIDS [Concomitant]

REACTIONS (3)
  - DIABETES MELLITUS [None]
  - BLOOD GLUCOSE INCREASED [None]
  - CROHN'S DISEASE [None]
